FAERS Safety Report 8868591 (Version 1)
Quarter: 2012Q4

REPORT INFORMATION
  Report Type: 
  Country: US (occurrence: US)
  Receive Date: 20121026
  Receipt Date: 20121026
  Transmission Date: 20130627
  Serious: No
  Sender: FDA-Public Use
  Company Number: US-AMGEN-USASP2012046300

PATIENT
  Age: 44 Year
  Sex: Female

DRUGS (3)
  1. ENBREL [Suspect]
     Indication: RHEUMATOID ARTHRITIS
     Dosage: 50 mg/ml, qwk
     Route: 058
     Dates: start: 20120705
  2. LEFLUNOMIDE [Concomitant]
     Dosage: 10 mg, UNK
  3. LEVOTHYROXINE [Concomitant]
     Dosage: 100 mug, UNK

REACTIONS (1)
  - Injection site warmth [Unknown]
